FAERS Safety Report 10958270 (Version 2)
Quarter: 2015Q2

REPORT INFORMATION
  Report Type: Report from Study
  Country: US (occurrence: US)
  Receive Date: 20150326
  Receipt Date: 20150407
  Transmission Date: 20150821
  Serious: Yes (Hospitalization, Congenital Anomaly, Other)
  Sender: FDA-Public Use
  Company Number: US-ABBVIE-15P-163-1364659-00

PATIENT
  Sex: Female

DRUGS (2)
  1. HUMIRA [Suspect]
     Active Substance: ADALIMUMAB
     Indication: MATERNAL EXPOSURE TIMING UNSPECIFIED
     Route: 064
  2. HUMIRA [Suspect]
     Active Substance: ADALIMUMAB
     Route: 063

REACTIONS (8)
  - Atrial septal defect [Recovered/Resolved]
  - Coarctation of the aorta [Recovered/Resolved]
  - Scoliosis [Not Recovered/Not Resolved]
  - Congenital heart valve disorder [Not Recovered/Not Resolved]
  - Exposure during breast feeding [Unknown]
  - Ventricular septal defect [Recovered/Resolved]
  - Arrhythmia [Not Recovered/Not Resolved]
  - Foetal exposure during pregnancy [Unknown]

NARRATIVE: CASE EVENT DATE: 2007
